FAERS Safety Report 19400642 (Version 3)
Quarter: 2025Q1

REPORT INFORMATION
  Report Type: Spontaneous
  Country: US (occurrence: US)
  Receive Date: 20210610
  Receipt Date: 20250203
  Transmission Date: 20250409
  Serious: Yes (Disabling, Other)
  Sender: NOVO NORDISK
  Company Number: US-NOVOPROD-818215

PATIENT
  Sex: Female

DRUGS (2)
  1. TRESIBA [Suspect]
     Active Substance: INSULIN DEGLUDEC
     Indication: Product used for unknown indication
     Dosage: 16 IU, QD
     Route: 058
     Dates: start: 2006
  2. TRESIBA [Suspect]
     Active Substance: INSULIN DEGLUDEC
     Route: 058

REACTIONS (5)
  - Diabetic retinopathy [Recovering/Resolving]
  - Diabetic retinal oedema [Unknown]
  - Blindness [Unknown]
  - Cataract operation [Unknown]
  - Hypoacusis [Unknown]
